FAERS Safety Report 5673938-5 (Version None)
Quarter: 2008Q2

REPORT INFORMATION
  Report Type: 
  Country: None (occurrence: None)
  Receive Date: 20080226
  Receipt Date: 20070614
  Transmission Date: 20081010
  Serious: Yes (Other)
  Sender: FDA-Public Use
  Company Number: DSA_30107_2007

PATIENT
  Age: 62 Year
  Sex: Male

DRUGS (1)
  1. VASOTEC [Suspect]
     Dosage: (5 MG QD ORAL)
     Route: 048
     Dates: end: 19970101

REACTIONS (1)
  - ANGIOEDEMA [None]
